FAERS Safety Report 22123766 (Version 1)
Quarter: 2023Q1

REPORT INFORMATION
  Report Type: Other
  Country: DE (occurrence: None)
  Receive Date: 20230322
  Receipt Date: 20230322
  Transmission Date: 20230418
  Serious: No
  Sender: FDA-Public Use
  Company Number: DE-ROCHE-2654463

PATIENT
  Age: 65 Year
  Sex: Female

DRUGS (19)
  1. OCREVUS [Suspect]
     Active Substance: OCRELIZUMAB
     Indication: Secondary progressive multiple sclerosis
     Route: 042
     Dates: start: 20200729
  2. OCREVUS [Suspect]
     Active Substance: OCRELIZUMAB
     Route: 042
     Dates: start: 20210208
  3. OCREVUS [Suspect]
     Active Substance: OCRELIZUMAB
     Route: 042
     Dates: start: 20210810
  4. COMIRNATY [Suspect]
     Active Substance: TOZINAMERAN
     Indication: COVID-19 immunisation
     Dosage: FIRST VACCINATION DOSE
     Route: 065
  5. COMIRNATY [Suspect]
     Active Substance: TOZINAMERAN
     Dosage: SECOND VACCINATION
     Route: 065
     Dates: start: 20210520
  6. COMIRNATY [Suspect]
     Active Substance: TOZINAMERAN
     Dosage: FOURTH VACCINATION
     Route: 065
     Dates: start: 20211124
  7. LEVOTHYROXINE SODIUM\LIOTHYRONINE SODIUM [Concomitant]
     Active Substance: LEVOTHYROXINE SODIUM\LIOTHYRONINE SODIUM
     Dosage: (1/2-0-0)
  8. TORSEMIDE [Concomitant]
     Active Substance: TORSEMIDE
  9. AMLODIPINE [Concomitant]
     Active Substance: AMLODIPINE BESYLATE
  10. CANDESARTAN [Concomitant]
     Active Substance: CANDESARTAN
  11. BISOPROLOL [Concomitant]
     Active Substance: BISOPROLOL
  12. LEVOTHYROXINE [Concomitant]
     Active Substance: LEVOTHYROXINE
  13. VITAMIN D3 [Concomitant]
     Active Substance: CHOLECALCIFEROL
  14. AMITRIPTYLINE [Concomitant]
     Active Substance: AMITRIPTYLINE
  15. CHOLECALCIFEROL [Concomitant]
     Active Substance: CHOLECALCIFEROL
  16. HYGROTON [Concomitant]
     Active Substance: CHLORTHALIDONE
     Dosage: 1/2-0-0
  17. VALSARTAN [Concomitant]
     Active Substance: VALSARTAN
     Dosage: 1/2-0-0
  18. VENLAFAXINE [Concomitant]
     Active Substance: VENLAFAXINE HYDROCHLORIDE
     Dosage: 1-0-0
  19. PRAMIPEXOLE [Concomitant]
     Active Substance: PRAMIPEXOLE
     Dosage: 1-0-0

REACTIONS (9)
  - Off label use [Unknown]
  - Fatigue [Recovered/Resolved]
  - Restlessness [Recovered/Resolved]
  - Initial insomnia [Recovered/Resolved]
  - Head discomfort [Recovered/Resolved]
  - Pain in extremity [Recovered/Resolved]
  - SARS-CoV-2 antibody test negative [Recovered/Resolved]
  - B-lymphocyte count decreased [Recovered/Resolved]
  - COVID-19 [Recovered/Resolved]

NARRATIVE: CASE EVENT DATE: 20200729
